FAERS Safety Report 11607820 (Version 1)
Quarter: 2015Q4

REPORT INFORMATION
  Report Type: Spontaneous
  Country: CH (occurrence: CH)
  Receive Date: 20151007
  Receipt Date: 20151007
  Transmission Date: 20160304
  Serious: Yes (Other)
  Sender: FDA-Public Use
  Company Number: CH-JNJFOC-20150927719

PATIENT
  Age: 29 Year
  Sex: Female

DRUGS (1)
  1. REMICADE [Suspect]
     Active Substance: INFLIXIMAB
     Indication: CROHN^S DISEASE
     Route: 042

REACTIONS (4)
  - Kidney fibrosis [Unknown]
  - Renal tubular atrophy [Unknown]
  - Glomerulonephritis membranoproliferative [Unknown]
  - Nephrocalcinosis [Unknown]

NARRATIVE: CASE EVENT DATE: 20150715
